FAERS Safety Report 18415761 (Version 6)
Quarter: 2022Q3

REPORT INFORMATION
  Report Type: Spontaneous
  Country: US (occurrence: US)
  Receive Date: 20201022
  Receipt Date: 20220823
  Transmission Date: 20221027
  Serious: Yes (Other)
  Sender: FDA-Public Use
  Company Number: US-PFIZER INC-2020408158

PATIENT
  Age: 54 Year
  Sex: Female

DRUGS (4)
  1. IBRANCE [Suspect]
     Active Substance: PALBOCICLIB
     Dosage: 100 MG
     Dates: start: 20200131
  2. IBRANCE [Suspect]
     Active Substance: PALBOCICLIB
     Dosage: 75 MG
     Dates: start: 20210517
  3. IBRANCE [Suspect]
     Active Substance: PALBOCICLIB
     Dosage: UNK
     Dates: start: 20200128, end: 20220517
  4. IBRANCE [Suspect]
     Active Substance: PALBOCICLIB
     Dosage: (INCREASED WEEK OFF FROM MEDICATION FROM 1 WEEK TO 2 WEEKS FOR 2 CYCLES)

REACTIONS (17)
  - Kidney infection [Unknown]
  - Lupus-like syndrome [Unknown]
  - Blood glucose abnormal [Unknown]
  - Onychoclasis [Unknown]
  - Alopecia [Not Recovered/Not Resolved]
  - Nail discolouration [Unknown]
  - Fatigue [Unknown]
  - Full blood count abnormal [Unknown]
  - Hair texture abnormal [Unknown]
  - Nail disorder [Unknown]
  - Onychalgia [Unknown]
  - Arthralgia [Unknown]
  - White blood cell count decreased [Unknown]
  - Red blood cell count decreased [Unknown]
  - Haematocrit decreased [Unknown]
  - Haemoglobin decreased [Unknown]
  - Mean cell volume increased [Unknown]

NARRATIVE: CASE EVENT DATE: 20200101
